FAERS Safety Report 20259889 (Version 1)
Quarter: 2021Q4

REPORT INFORMATION
  Report Type: Spontaneous
  Country: IT (occurrence: None)
  Receive Date: 20211230
  Receipt Date: 20211230
  Transmission Date: 20220303
  Serious: Yes (Other)
  Sender: FDA-Public Use
  Company Number: IT-Merck Healthcare KGaA-9289814

PATIENT
  Age: 33 Year
  Sex: Female

DRUGS (12)
  1. EUTHYROX [Suspect]
     Active Substance: LEVOTHYROXINE SODIUM
     Indication: Hypothyroidism
     Dosage: EUTHYROX 50
     Route: 048
     Dates: start: 2012, end: 202104
  2. COMIRNATY [Suspect]
     Active Substance: TOZINAMERAN
     Indication: COVID-19 immunisation
     Dosage: 1ST DOSE, SINGLE
     Route: 030
     Dates: start: 20210209, end: 20210209
  3. COMIRNATY [Suspect]
     Active Substance: TOZINAMERAN
     Dosage: 2ND DOSE
     Route: 030
     Dates: start: 20210302, end: 20210302
  4. NIMENRIX [Concomitant]
     Active Substance: CLOSTRIDIUM TETANI TOXOID ANTIGEN (FORMALDEHYDE INACTIVATED)\MENINGOCOCCAL POLYSACCHARIDE VACCINE, G
     Indication: Product used for unknown indication
     Dates: start: 20161209, end: 20161209
  5. GARDASIL 9 [Concomitant]
     Active Substance: HUMAN PAPILLOMAVIRUS TYPE 11 L1 CAPSID PROTEIN ANTIGEN\HUMAN PAPILLOMAVIRUS TYPE 16 L1 CAPSID PROTEI
     Indication: Product used for unknown indication
     Dates: start: 20210910
  6. POLIOBOOSTRIX [Concomitant]
     Indication: Product used for unknown indication
     Dates: start: 20180604, end: 20180604
  7. M-M-RVAXPRO [Concomitant]
     Active Substance: MEASLES VIRUS STRAIN ENDERS^ ATTENUATED EDMONSTON LIVE ANTIGEN\MUMPS VIRUS STRAIN B LEVEL JERYL LYNN
     Indication: Product used for unknown indication
     Dosage: 1ST DOSE
     Dates: start: 201810, end: 201810
  8. M-M-RVAXPRO [Concomitant]
     Active Substance: MEASLES VIRUS STRAIN ENDERS^ ATTENUATED EDMONSTON LIVE ANTIGEN\MUMPS VIRUS STRAIN B LEVEL JERYL LYNN
     Dosage: 2ND DOSE
     Dates: start: 202001, end: 202001
  9. MENINGOCOCCAL POLYSACCHARIDE VACCINE A NOS [Concomitant]
     Active Substance: MENINGOCOCCAL POLYSACCHARIDE VACCINE A\NEISSERIA MENINGITIDIS GROUP A CAPSULAR POLYSACCHARIDE ANTIGE
     Indication: Product used for unknown indication
     Dates: start: 20161209
  10. ACETAMINOPHEN [Concomitant]
     Active Substance: ACETAMINOPHEN
     Indication: Headache
     Dates: start: 201612
  11. PREDNISONE [Concomitant]
     Active Substance: PREDNISONE
     Indication: Product used for unknown indication
     Route: 048
     Dates: start: 20210326
  12. PREDNISONE [Concomitant]
     Active Substance: PREDNISONE
     Route: 048
     Dates: start: 202110

REACTIONS (12)
  - Petechiae [Recovered/Resolved]
  - Diastolic hypertension [Unknown]
  - Memory impairment [Unknown]
  - Confusional state [Unknown]
  - Anaemia [Unknown]
  - Blood bilirubin unconjugated increased [Unknown]
  - Microalbuminuria [Unknown]
  - Visual field defect [Recovered/Resolved]
  - Drug intolerance [Unknown]
  - Heavy menstrual bleeding [Recovered/Resolved]
  - Headache [Unknown]
  - Arrhythmia [Unknown]

NARRATIVE: CASE EVENT DATE: 20210101
